FAERS Safety Report 24132027 (Version 3)
Quarter: 2024Q3

REPORT INFORMATION
  Report Type: Spontaneous
  Country: DE (occurrence: DE)
  Receive Date: 20240724
  Receipt Date: 20240808
  Transmission Date: 20241016
  Serious: Yes (Hospitalization)
  Sender: PFIZER
  Company Number: DE-Accord-434493

PATIENT
  Age: 17 Year
  Sex: Female
  Weight: 63.9 kg

DRUGS (39)
  1. METHOTREXATE SODIUM [Suspect]
     Active Substance: METHOTREXATE SODIUM
     Indication: Chemotherapy
     Dosage: 1790 MG, ONCE
     Dates: start: 20240522, end: 20240524
  2. VINCRISTINE SULFATE [Suspect]
     Active Substance: VINCRISTINE SULFATE
     Indication: Chemotherapy
     Dosage: 2 MG, D1 AND D6
     Dates: start: 20240522, end: 20240527
  3. CYCLOPHOSPHAMIDE [Suspect]
     Active Substance: CYCLOPHOSPHAMIDE
     Indication: Chemotherapy
     Dosage: 358 MG, 2X/DAY
     Dates: start: 20240523, end: 20240525
  4. CYTARABINE [Suspect]
     Active Substance: CYTARABINE
     Indication: Chemotherapy
     Dosage: 3580 MG, 2X/DAY
     Dates: start: 20240526, end: 20240526
  5. AMBISOME [Concomitant]
     Active Substance: AMPHOTERICIN B
     Indication: Antifungal prophylaxis
     Dosage: 200 MG, WEEKLY
     Dates: start: 20240419, end: 20240507
  6. AMBISOME [Concomitant]
     Active Substance: AMPHOTERICIN B
     Indication: Leukaemia recurrent
     Dosage: UNK
  7. CASPOFUNGIN [Concomitant]
     Active Substance: CASPOFUNGIN
     Indication: Leukaemia recurrent
     Dosage: 70 MG, 1X/DAY
     Dates: start: 20240501, end: 20240501
  8. CASPOFUNGIN [Concomitant]
     Active Substance: CASPOFUNGIN
     Dosage: 50 MG, 1X/DAY
     Dates: start: 20240502, end: 20240506
  9. CASPOFUNGIN [Concomitant]
     Active Substance: CASPOFUNGIN
     Dosage: UNK
  10. COTRIM [Concomitant]
     Active Substance: SULFAMETHOXAZOLE\TRIMETHOPRIM
     Indication: Infection prophylaxis
     Dosage: UNK
     Route: 048
  11. COTRIMOXAZOLE [Concomitant]
     Active Substance: SULFAMETHOXAZOLE\TRIMETHOPRIM
     Indication: Leukaemia recurrent
     Dosage: 160 MG, 2X/WEEK
     Route: 048
     Dates: start: 20240420, end: 20240505
  12. COTRIMOXAZOLE [Concomitant]
     Active Substance: SULFAMETHOXAZOLE\TRIMETHOPRIM
     Dosage: UNK
  13. DEXAMETHASONE [Concomitant]
     Active Substance: DEXAMETHASONE
     Indication: Chemotherapy
     Dosage: 9 MG, 2X/DAY
     Dates: start: 20240522, end: 20240527
  14. INOTUZUMAB OZOGAMICIN [Concomitant]
     Active Substance: INOTUZUMAB OZOGAMICIN
     Indication: Leukaemia recurrent
     Dosage: 0.94 MG, WEEKLY
     Dates: start: 20240422, end: 20240506
  15. INOTUZUMAB OZOGAMICIN [Concomitant]
     Active Substance: INOTUZUMAB OZOGAMICIN
     Dosage: UNK
  16. POTASSIUM [Concomitant]
     Active Substance: POTASSIUM
     Indication: Leukaemia recurrent
     Dosage: 5 CAPSULE
     Route: 048
     Dates: start: 20240428, end: 20240503
  17. POTASSIUM [Concomitant]
     Active Substance: POTASSIUM
     Dosage: UNK
  18. LACTULOSE [Concomitant]
     Active Substance: LACTULOSE
     Indication: Leukaemia recurrent
     Dosage: 5 ML, 1X/DAY
     Route: 048
     Dates: start: 20240503, end: 20240505
  19. LACTULOSE [Concomitant]
     Active Substance: LACTULOSE
     Dosage: 5 ML, 1X/DAY
     Route: 048
     Dates: start: 20240507, end: 20240507
  20. LACTULOSE [Concomitant]
     Active Substance: LACTULOSE
     Dosage: 5 ML, 2X/DAY
     Route: 048
     Dates: start: 20240506, end: 20240506
  21. LACTULOSE [Concomitant]
     Active Substance: LACTULOSE
     Dosage: UNK
  22. OMEPRAZOLE [Concomitant]
     Active Substance: OMEPRAZOLE
     Indication: Leukaemia recurrent
     Dosage: 20 MG, 1X/DAY
     Dates: start: 20240418, end: 20240501
  23. OMEPRAZOLE [Concomitant]
     Active Substance: OMEPRAZOLE
     Dosage: UNK
  24. ONDANSETRON [Concomitant]
     Active Substance: ONDANSETRON
     Indication: Leukaemia recurrent
     Dosage: 8 MG, 2X/DAY
     Dates: start: 20240429, end: 20240429
  25. ONDANSETRON [Concomitant]
     Active Substance: ONDANSETRON
     Dosage: UNK
  26. ACETAMINOPHEN [Concomitant]
     Active Substance: ACETAMINOPHEN
     Indication: Leukaemia recurrent
     Dosage: 500 MG, 2X/DAY
     Dates: start: 20240429, end: 20240501
  27. ACETAMINOPHEN [Concomitant]
     Active Substance: ACETAMINOPHEN
     Dosage: 500 MG, 3X/DAY
     Dates: start: 20240502, end: 20240502
  28. ACETAMINOPHEN [Concomitant]
     Active Substance: ACETAMINOPHEN
     Dosage: 500 MG, 2X/DAY
     Dates: start: 20240503, end: 20240503
  29. ACETAMINOPHEN [Concomitant]
     Active Substance: ACETAMINOPHEN
     Dosage: UNK
  30. ACETAMINOPHEN [Concomitant]
     Active Substance: ACETAMINOPHEN
     Indication: Leukaemia recurrent
     Dosage: 500 MG, 1X/DAY
     Dates: start: 20240504, end: 20240504
  31. ACETAMINOPHEN [Concomitant]
     Active Substance: ACETAMINOPHEN
     Dosage: UNK
  32. PEGASPARGASE [Concomitant]
     Active Substance: PEGASPARGASE
     Indication: Chemotherapy
     Dosage: 1790, SINGLE
     Dates: start: 20240527, end: 20240527
  33. PEGASPARGASE [Concomitant]
     Active Substance: PEGASPARGASE
     Dosage: UNK
  34. TAZOBACTAM [Concomitant]
     Active Substance: TAZOBACTAM
     Indication: Leukaemia recurrent
     Dosage: 4 G, 3X/DAY
     Dates: start: 20240423, end: 20240502
  35. TAZOBACTAM [Concomitant]
     Active Substance: TAZOBACTAM
     Dosage: 4 G, 1X/DAY
     Dates: start: 20240503, end: 20240503
  36. TAZOBACTAM [Concomitant]
     Active Substance: TAZOBACTAM
     Dosage: UNK
  37. VANCOMYCIN [Concomitant]
     Active Substance: VANCOMYCIN
     Indication: Leukaemia recurrent
     Dosage: 500 MG, 1X/DAY
     Dates: start: 20240428, end: 20240501
  38. VANCOMYCIN [Concomitant]
     Active Substance: VANCOMYCIN
     Dosage: 500 MG, 2X/DAY
     Dates: start: 20240502, end: 20240502
  39. VANCOMYCIN [Concomitant]
     Active Substance: VANCOMYCIN
     Dosage: UNK

REACTIONS (2)
  - Bone marrow failure [Recovered/Resolved]
  - Mucosal inflammation [Recovered/Resolved]

NARRATIVE: CASE EVENT DATE: 20240529
